FAERS Safety Report 7909202-0 (Version None)
Quarter: 2011Q4

REPORT INFORMATION
  Report Type: 
  Country: None (occurrence: None)
  Receive Date: 20111111
  Receipt Date: 20110902
  Transmission Date: 20120403
  Serious: No
  Sender: FDA-Public Use
  Company Number: US-GLAXOSMITHKLINE-A0943357A

PATIENT
  Age: 83 Year
  Sex: Female

DRUGS (11)
  1. TYLENOL EXTRA STRENGTH [Concomitant]
  2. ALTACE [Concomitant]
  3. GLYBURIDE [Concomitant]
  4. FUROSEMIDE [Concomitant]
  5. ASPIRIN [Concomitant]
  6. GABAPENTIN [Concomitant]
  7. COREG [Suspect]
     Indication: CARDIAC FAILURE CONGESTIVE
     Route: 048
  8. METFORMIN HCL [Concomitant]
  9. JANUVIA [Concomitant]
  10. SYNTHROID [Concomitant]
  11. LIPITOR [Concomitant]

REACTIONS (2)
  - FLUID RETENTION [None]
  - HYPOTENSION [None]
